FAERS Safety Report 15934521 (Version 2)
Quarter: 2019Q1

REPORT INFORMATION
  Report Type: Spontaneous
  Country: JP (occurrence: JP)
  Receive Date: 20190207
  Receipt Date: 20190219
  Transmission Date: 20190417
  Serious: Yes (Hospitalization)
  Sender: FDA-Public Use
  Company Number: JP-NAPPMUNDI-GBR-2019-0063550

PATIENT
  Age: 79 Year
  Sex: Female

DRUGS (5)
  1. NORSPAN [Suspect]
     Active Substance: BUPRENORPHINE
     Dosage: 5 MCG, Q1H
     Route: 062
     Dates: start: 20181205, end: 20181219
  2. REFLEX                             /00684602/ [Concomitant]
     Dosage: 15 MG, UNK
     Route: 065
     Dates: start: 20190125
  3. ETIZOLAM [Concomitant]
     Active Substance: ETIZOLAM
     Dosage: 0.5 MG, TID [ 0.5 MG 3 TABLETS IN THREE DIVIDED DOSES]
  4. NORSPAN [Suspect]
     Active Substance: BUPRENORPHINE
     Dosage: 10 MCG, Q1H
     Route: 062
     Dates: start: 20181219, end: 20190116
  5. NORSPAN [Suspect]
     Active Substance: BUPRENORPHINE
     Indication: BACK PAIN
     Dosage: 5 MCG, Q1H
     Route: 062
     Dates: start: 20190116, end: 20190123

REACTIONS (5)
  - Choking sensation [Recovered/Resolved]
  - Dysgeusia [Not Recovered/Not Resolved]
  - Hyperventilation [Recovered/Resolved]
  - Drug withdrawal syndrome [Recovered/Resolved]
  - Dyspnoea [Recovered/Resolved]

NARRATIVE: CASE EVENT DATE: 20181205
